FAERS Safety Report 9726341 (Version 6)
Quarter: 2015Q3

REPORT INFORMATION
  Report Type: Report from Study
  Country: DE (occurrence: DE)
  Receive Date: 20131203
  Receipt Date: 20150803
  Transmission Date: 20151125
  Serious: Yes (Hospitalization, Other)
  Sender: FDA-Public Use
  Company Number: DE-INCYTE CORPORATION-2013IN002822

PATIENT
  Sex: Male
  Weight: 76 kg

DRUGS (18)
  1. ICL670A DISPERSIBLE TABLET [Suspect]
     Active Substance: DEFERASIROX
     Dosage: 2250 MG, QD
     Route: 065
     Dates: start: 20130925, end: 20140113
  2. ICL670A DISPERSIBLE TABLET [Suspect]
     Active Substance: DEFERASIROX
     Dosage: 1500 MG, QD
     Route: 065
     Dates: start: 20141014
  3. MARCUMAR [Concomitant]
     Active Substance: PHENPROCOUMON
     Dosage: AFTER INR
     Route: 048
  4. JAKAFI [Suspect]
     Active Substance: RUXOLITINIB
     Dosage: 5 MG, QD
     Route: 048
     Dates: start: 20131119, end: 20140113
  5. RAMIPRIL. [Concomitant]
     Active Substance: RAMIPRIL
     Indication: HYPERTENSION
     Dosage: UNK
  6. TORASEMIDE [Concomitant]
     Active Substance: TORSEMIDE
     Dosage: 5 MG, QD
     Route: 048
  7. JAKAFI [Suspect]
     Active Substance: RUXOLITINIB
     Indication: MYELOFIBROSIS
     Dosage: 5 MG, QD
     Route: 048
     Dates: start: 20130926, end: 20131108
  8. ICL670A DISPERSIBLE TABLET [Suspect]
     Active Substance: DEFERASIROX
     Dosage: 1500 MG, QD
     Route: 065
     Dates: start: 20140114, end: 20140210
  9. RAMIPRIL. [Concomitant]
     Active Substance: RAMIPRIL
     Dosage: 5 MG, QD
     Route: 048
  10. SPIRO [Concomitant]
     Indication: PRODUCT USED FOR UNKNOWN INDICATION
     Dosage: 50 MG, QD
     Route: 065
     Dates: start: 20150714
  11. ICL670A DISPERSIBLE TABLET [Suspect]
     Active Substance: DEFERASIROX
     Dosage: 1000 MG, QD
     Route: 048
     Dates: start: 20140211, end: 20141013
  12. HCT [Concomitant]
     Active Substance: HYDROCHLOROTHIAZIDE
     Indication: PRODUCT USED FOR UNKNOWN INDICATION
     Dosage: 25 MG, QD
     Route: 065
     Dates: start: 20150714
  13. ICL670A DISPERSIBLE TABLET [Suspect]
     Active Substance: DEFERASIROX
     Indication: MYELOPROLIFERATIVE DISORDER
     Dosage: 1500 MG, DAILY, (20MG/KG/DAY)
     Route: 065
     Dates: start: 20130703, end: 20130924
  14. TORASEMIDE [Concomitant]
     Active Substance: TORSEMIDE
     Indication: HYPERTENSION
     Dosage: UNK
  15. JAKAFI [Suspect]
     Active Substance: RUXOLITINIB
     Dosage: 10 MG, QD
     Route: 048
     Dates: start: 20140114
  16. MARCUMAR [Concomitant]
     Active Substance: PHENPROCOUMON
     Indication: ATRIAL FIBRILLATION
     Dosage: UNK
  17. METOPROLOL [Concomitant]
     Active Substance: METOPROLOL
     Indication: HYPERTENSION
     Dosage: UNK
  18. METOPROLOL [Concomitant]
     Active Substance: METOPROLOL
     Dosage: 50 MG, QD
     Route: 048

REACTIONS (4)
  - Creatinine renal clearance decreased [Not Recovered/Not Resolved]
  - Fluid intake reduced [Unknown]
  - Pneumonia [Recovered/Resolved]
  - Blood creatinine increased [Not Recovered/Not Resolved]

NARRATIVE: CASE EVENT DATE: 20131002
